FAERS Safety Report 8573268-8 (Version None)
Quarter: 2012Q3

REPORT INFORMATION
  Report Type: 
  Country: None (occurrence: None)
  Receive Date: 20120806
  Receipt Date: 20120731
  Transmission Date: 20120928
  Serious: Yes (Other)
  Sender: FDA-Public Use
  Company Number: US-PFIZER INC-2012168239

PATIENT
  Age: 44 Year
  Sex: Female
  Weight: 90.703 kg

DRUGS (6)
  1. SINGULAIR [Concomitant]
     Indication: ASTHMA
  2. FLEXERIL [Concomitant]
     Dosage: 10 MG, 3X/DAY
  3. SINGULAIR [Concomitant]
     Indication: HYPERSENSITIVITY
     Dosage: 10 MG, 1X/DAY
  4. LYRICA [Suspect]
     Indication: LIMB INJURY
     Dosage: 150 MG, 2X/DAY
     Route: 048
     Dates: start: 20110101, end: 20120401
  5. ZANAFLEX [Concomitant]
     Dosage: 4 MG, 3X/DAY
  6. TRAMADOL [Concomitant]
     Dosage: 50 MG, 2X/DAY

REACTIONS (4)
  - FIBROMYALGIA [None]
  - PAIN [None]
  - THROMBOSIS [None]
  - GAIT DISTURBANCE [None]
